FAERS Safety Report 18122889 (Version 1)
Quarter: 2020Q3

REPORT INFORMATION
  Report Type: Spontaneous
  Country: US (occurrence: US)
  Receive Date: 20200807
  Receipt Date: 20200807
  Transmission Date: 20201103
  Serious: No
  Sender: FDA-Public Use
  Company Number: NVSC2020US217334

PATIENT
  Sex: Female
  Weight: 102.04 kg

DRUGS (1)
  1. COSENTYX [Suspect]
     Active Substance: SECUKINUMAB
     Indication: PRODUCT USED FOR UNKNOWN INDICATION
     Dosage: 300 MG, Q4W
     Route: 058
     Dates: start: 20200709

REACTIONS (4)
  - Headache [Unknown]
  - Fatigue [Unknown]
  - Myalgia [Unknown]
  - Blepharospasm [Unknown]
